FAERS Safety Report 11867791 (Version 1)
Quarter: 2015Q4

REPORT INFORMATION
  Report Type: Spontaneous
  Country: US (occurrence: None)
  Receive Date: 20151223
  Receipt Date: 20151223
  Transmission Date: 20160305
  Serious: Yes (Life-Threatening)
  Sender: FDA-Public Use
  Company Number: None

PATIENT
  Age: 30 Year
  Sex: Male
  Weight: 117.94 kg

DRUGS (3)
  1. FAMOTIDINE. [Suspect]
     Active Substance: FAMOTIDINE
     Indication: GASTROOESOPHAGEAL REFLUX DISEASE
     Route: 048
     Dates: start: 20151102, end: 20151217
  2. LORATADINE. [Concomitant]
     Active Substance: LORATADINE
  3. ADVARE [Concomitant]

REACTIONS (2)
  - Suicidal ideation [None]
  - Mental disorder [None]

NARRATIVE: CASE EVENT DATE: 20151220
